FAERS Safety Report 6416618-0 (Version None)
Quarter: 2009Q4

REPORT INFORMATION
  Report Type: 
  Country: None (occurrence: None)
  Receive Date: 20091027
  Receipt Date: 20091021
  Transmission Date: 20100525
  Serious: Yes (Death, Life-Threatening)
  Sender: FDA-Public Use
  Company Number: DE-CELGENEUS-062-21880-09101344

PATIENT
  Sex: Male
  Weight: 95 kg

DRUGS (3)
  1. REVLIMID [Suspect]
     Indication: HODGKIN'S DISEASE
     Route: 048
     Dates: start: 20091002, end: 20091008
  2. PREDNISOLONE [Concomitant]
     Indication: HODGKIN'S DISEASE
     Route: 065
     Dates: start: 20090925
  3. TAVANIC [Concomitant]
     Indication: DRUG USE FOR UNKNOWN INDICATION
     Route: 065
     Dates: start: 20090801

REACTIONS (2)
  - ACUTE GRAFT VERSUS HOST DISEASE IN INTESTINE [None]
  - ACUTE GRAFT VERSUS HOST DISEASE IN LIVER [None]
